FAERS Safety Report 12460873 (Version 2)
Quarter: 2016Q2

REPORT INFORMATION
  Report Type: Spontaneous
  Country: US (occurrence: US)
  Receive Date: 20160613
  Receipt Date: 20160615
  Transmission Date: 20160815
  Serious: No
  Sender: FDA-Public Use
  Company Number: US-MDT-ADR-2016-01070

PATIENT
  Age: 52 Year
  Sex: Male

DRUGS (4)
  1. COMPOUNDED BACLOFEN [Suspect]
     Active Substance: BACLOFEN
     Dosage: 151.08 MCG/DAY
     Route: 037
  2. LIDOCAINE. [Suspect]
     Active Substance: LIDOCAINE
  3. COMPOUNDED MORPHINE [Suspect]
     Active Substance: MORPHINE
     Dosage: 13.735 MG/DAY
     Route: 037
  4. CLONIDINE. [Suspect]
     Active Substance: CLONIDINE
     Dosage: 171.68 MCG/DAY
     Route: 037

REACTIONS (2)
  - Migraine [Unknown]
  - Psychiatric symptom [Unknown]
